FAERS Safety Report 15115467 (Version 1)
Quarter: 2018Q3

REPORT INFORMATION
  Report Type: Spontaneous
  Country: FR (occurrence: FR)
  Receive Date: 20180706
  Receipt Date: 20180706
  Transmission Date: 20181010
  Serious: Yes (Other)
  Sender: FDA-Public Use
  Company Number: FR-AUROBINDO-AUR-APL-2018-033107

PATIENT
  Age: 73 Year
  Sex: Female

DRUGS (5)
  1. OFLOXACIN ARROW [Suspect]
     Active Substance: OFLOXACIN
     Indication: ARTHRITIS BACTERIAL
     Dosage: 400 MILLIGRAM, DAILY
     Route: 048
     Dates: start: 20170714, end: 20170804
  2. ACUPAN [Suspect]
     Active Substance: NEFOPAM HYDROCHLORIDE
     Indication: PAIN
     Dosage: NON RENSEIGNEE
     Route: 042
     Dates: start: 20170707, end: 20170719
  3. SPECIAFOLDINE [Suspect]
     Active Substance: FOLIC ACID
     Indication: PRODUCT USED FOR UNKNOWN INDICATION
     Dosage: 5 MILLIGRAM, DAILY
     Route: 048
     Dates: start: 20170707
  4. TRAMADOL. [Suspect]
     Active Substance: TRAMADOL
     Indication: PAIN
     Dosage: 50 MILLIGRAM, Q4H
     Route: 048
     Dates: start: 20170707
  5. RIFADINE                           /00146901/ [Suspect]
     Active Substance: RIFAMPIN
     Indication: ARTHRITIS BACTERIAL
     Dosage: 1200 MILLIGRAM, DAILY
     Route: 048
     Dates: start: 20170714, end: 20170804

REACTIONS (1)
  - Hyperbilirubinaemia [Recovered/Resolved]

NARRATIVE: CASE EVENT DATE: 20170717
